FAERS Safety Report 7943709-5 (Version None)
Quarter: 2011Q4

REPORT INFORMATION
  Report Type: 
  Country: None (occurrence: None)
  Receive Date: 20111128
  Receipt Date: 20110825
  Transmission Date: 20120403
  Serious: Yes (Other)
  Sender: FDA-Public Use
  Company Number: US-ABBOTT-11P-163-0877619-00

PATIENT
  Age: 54 Year
  Sex: Male

DRUGS (3)
  1. HUMIRA [Suspect]
     Indication: PSORIASIS
     Dates: start: 20070101, end: 20100801
  2. PRANDIN [Concomitant]
     Indication: DIABETES MELLITUS
  3. COUMADIN [Concomitant]
     Indication: THROMBOSIS
     Dosage: CURRENT - DOSE VARIES

REACTIONS (3)
  - PULMONARY EMBOLISM [None]
  - PNEUMOTHORAX [None]
  - DYSPNOEA [None]
